FAERS Safety Report 13482925 (Version 2)
Quarter: 2017Q2

REPORT INFORMATION
  Report Type: Spontaneous
  Country: US (occurrence: US)
  Receive Date: 20170426
  Receipt Date: 20170427
  Transmission Date: 20170830
  Serious: No
  Sender: FDA-Public Use
  Company Number: US-009507513-1703USA014405

PATIENT

DRUGS (1)
  1. VYTORIN [Suspect]
     Active Substance: EZETIMIBE\SIMVASTATIN
     Dosage: 1 TABLET (10/20 MG) AT BEDTIME
     Route: 048

REACTIONS (3)
  - Product contamination chemical [Unknown]
  - Exposure to chemical pollution [Unknown]
  - No adverse event [Unknown]
